FAERS Safety Report 7501657-9 (Version None)
Quarter: 2011Q2

REPORT INFORMATION
  Report Type: 
  Country: None (occurrence: None)
  Receive Date: 20110524
  Receipt Date: 20110512
  Transmission Date: 20111010
  Serious: Yes (Hospitalization)
  Sender: FDA-Public Use
  Company Number: US-ELI_LILLY_AND_COMPANY-US201104004188

PATIENT
  Sex: Female

DRUGS (12)
  1. ZYPREXA [Suspect]
     Dosage: 5 MG, EVERY 8 HRS
     Route: 048
     Dates: start: 20110412
  2. ZYPREXA RELPREVV [Suspect]
     Indication: SCHIZOPHRENIA
     Dosage: 300 MG, OTHER
     Route: 030
     Dates: start: 20110412
  3. ASTUDAL [Concomitant]
  4. DEPAKOTE [Concomitant]
     Dosage: 500 MG, BID
     Route: 048
  5. NORVASC [Concomitant]
     Dosage: 10 MG, UNK
  6. TRILEPTAL [Concomitant]
     Dosage: 300 MG, UNK
     Route: 048
  7. BENADRYL [Concomitant]
     Dosage: 25 MG, PRN
     Route: 048
  8. LISINOPRIL [Concomitant]
     Dosage: 10 MG, UNK
  9. PRILOSEC [Concomitant]
  10. FLUPHENAZINE HCL [Concomitant]
  11. ZYPREXA [Suspect]
     Dosage: 25 MG, UNKNOWN
     Route: 048
     Dates: start: 20110411, end: 20110412
  12. AMANTADINE HCL [Concomitant]
     Dosage: 100 MG, BID
     Route: 048

REACTIONS (5)
  - DIZZINESS [None]
  - DIPLOPIA [None]
  - PRESBYOPIA [None]
  - BLOOD PRESSURE DECREASED [None]
  - OVERDOSE [None]
